FAERS Safety Report 21566593 (Version 2)
Quarter: 2023Q1

REPORT INFORMATION
  Report Type: Spontaneous
  Country: US (occurrence: US)
  Receive Date: 20221108
  Receipt Date: 20230111
  Transmission Date: 20230417
  Serious: No
  Sender: FDA-Public Use
  Company Number: US-PFIZER INC-202200524651

PATIENT
  Age: 68 Year
  Sex: Female
  Weight: 100.7 kg

DRUGS (10)
  1. VYNDAMAX [Suspect]
     Active Substance: TAFAMIDIS
     Indication: Amyloidosis
     Dosage: 61 MG, 1X/DAY
  2. VYNDAMAX [Suspect]
     Active Substance: TAFAMIDIS
     Indication: Cardiac disorder
     Dosage: 61 MG, 1X/DAY
     Dates: start: 201504
  3. RANOLAZINE [Concomitant]
     Active Substance: RANOLAZINE
     Indication: Cardiac disorder
     Dosage: 1000 MG, 2X/DAY (1 TABLET TWICE DAILY)
  4. CLONAZEPAM [Concomitant]
     Active Substance: CLONAZEPAM
     Indication: Anxiety
     Dosage: 1 TABLET EVERY 12 HOURS AS NEEDED
  5. BISOPROLOL [Concomitant]
     Active Substance: BISOPROLOL
     Indication: Blood pressure abnormal
     Dosage: 10MG TABLET DAILY
  6. DULOXETINE [Concomitant]
     Active Substance: DULOXETINE
     Indication: Depression
     Dosage: 60 MG, 2X/DAY (1 CAPSULE TWICE DAILY)
  7. TOPIRAMATE [Concomitant]
     Active Substance: TOPIRAMATE
     Indication: Migraine
     Dosage: 25 MG, 2X/DAY (1 TABLET TWICE DAILY)
  8. PREGABALIN [Concomitant]
     Active Substance: PREGABALIN
     Indication: Neuralgia
     Dosage: 75 MG, 2X/DAY (1 CAPSULE TWICE DAILY)
  9. CLOPIDOGREL [Concomitant]
     Active Substance: CLOPIDOGREL BISULFATE
     Indication: Neuropathy peripheral
     Dosage: 75 MG, 1X/DAY
  10. ROSUVASTATIN [Concomitant]
     Active Substance: ROSUVASTATIN
     Indication: Blood pressure abnormal
     Dosage: 40 MG, 1X/DAY

REACTIONS (7)
  - Malaise [Unknown]
  - Vertigo [Not Recovered/Not Resolved]
  - Fall [Unknown]
  - Herpes zoster [Not Recovered/Not Resolved]
  - Migraine [Unknown]
  - Blister [Unknown]
  - Memory impairment [Unknown]

NARRATIVE: CASE EVENT DATE: 20221001
